FAERS Safety Report 7536370-5 (Version None)
Quarter: 2011Q2

REPORT INFORMATION
  Report Type: 
  Country: None (occurrence: None)
  Receive Date: 20110609
  Receipt Date: 20110530
  Transmission Date: 20111010
  Serious: Yes (Death, Hospitalization)
  Sender: FDA-Public Use
  Company Number: SA-MILLENNIUM PHARMACEUTICALS, INC.-2011-02279

PATIENT

DRUGS (1)
  1. VELCADE [Suspect]
     Indication: MULTIPLE MYELOMA
     Dosage: 2 MG, UNK
     Route: 042
     Dates: start: 20110521, end: 20110521

REACTIONS (1)
  - VENTRICULAR FIBRILLATION [None]
